FAERS Safety Report 23620951 (Version 2)
Quarter: 2024Q1

REPORT INFORMATION
  Report Type: Other
  Country: PK (occurrence: None)
  Receive Date: 20240312
  Receipt Date: 20240315
  Transmission Date: 20240409
  Serious: Yes (Death)
  Sender: FDA-Public Use
  Company Number: PK-ROCHE-3444330

PATIENT
  Age: 48 Year
  Sex: Male

DRUGS (2)
  1. GAZYVA [Suspect]
     Active Substance: OBINUTUZUMAB
     Indication: Chronic lymphocytic leukaemia
     Route: 042
     Dates: start: 20231014
  2. RITUXIMAB [Suspect]
     Active Substance: RITUXIMAB
     Indication: Chronic lymphocytic leukaemia
     Dosage: 6 CYCLES
     Route: 042
     Dates: start: 20230128

REACTIONS (3)
  - Neoplasm malignant [Fatal]
  - Drug ineffective [Unknown]
  - Platelet count decreased [Unknown]
